FAERS Safety Report 8988558 (Version 2)
Quarter: 2013Q1

REPORT INFORMATION
  Report Type: Spontaneous
  Country: FR (occurrence: FR)
  Receive Date: 20121227
  Receipt Date: 20130201
  Transmission Date: 20140127
  Serious: Yes (Hospitalization, Disabling)
  Sender: FDA-Public Use
  Company Number: FR-B.I. PHARMACEUTICALS,INC./RIDGEFIELD-2012-FF-02042FF

PATIENT
  Age: 60 Year
  Sex: Male
  Weight: 130 kg

DRUGS (1)
  1. PRADAXA [Suspect]
     Indication: ATRIAL FIBRILLATION
     Dosage: 300 MG
     Route: 048
     Dates: start: 20121126, end: 20121129

REACTIONS (2)
  - Ischaemic stroke [Recovered/Resolved with Sequelae]
  - Drug ineffective [Unknown]
